FAERS Safety Report 9357289 (Version 2)
Quarter: 2013Q3

REPORT INFORMATION
  Report Type: Spontaneous
  Country: US (occurrence: None)
  Receive Date: 20130617
  Receipt Date: 20130729
  Transmission Date: 20140515
  Serious: Yes (Hospitalization)
  Sender: FDA-Public Use
  Company Number: UTC-033623

PATIENT
  Age: 77 Year
  Sex: Female
  Weight: 70.45 kg

DRUGS (4)
  1. TYVASO (6 MICROGRAM, AEROSOL FOR INHALATION) (TREPROSTINIL SODIUM) [Suspect]
     Indication: PULMONARY ARTERIAL HYPERTENSION
     Dosage: 18 TO 54 MICROGRAMS (4 IN 1 D)
     Route: 055
     Dates: start: 20111207
  2. TRACLEER [Concomitant]
  3. COUMADIN [Concomitant]
  4. REVATIO [Concomitant]

REACTIONS (8)
  - Pharyngeal oedema [None]
  - Pericardial effusion [None]
  - Iron deficiency anaemia [None]
  - Occult blood positive [None]
  - Unevaluable event [None]
  - Hypotension [None]
  - Hiatus hernia [None]
  - Gastric haemorrhage [None]
